FAERS Safety Report 11375291 (Version 2)
Quarter: 2015Q3

REPORT INFORMATION
  Report Type: Spontaneous
  Country: KR (occurrence: KR)
  Receive Date: 20150813
  Receipt Date: 20150819
  Transmission Date: 20151125
  Serious: Yes (Other)
  Sender: FDA-Public Use
  Company Number: KR-ASTRAZENECA-2015SE77193

PATIENT
  Age: 56 Year
  Sex: Female

DRUGS (2)
  1. GEFITINIB [Suspect]
     Active Substance: GEFITINIB
     Indication: NON-SMALL CELL LUNG CANCER STAGE IV
     Route: 048
  2. RADIOTHERAPY [Concomitant]
     Active Substance: RADIATION THERAPY
     Dosage: 30-GY WHOLE BRAIN IRRADIATION

REACTIONS (3)
  - Forced vital capacity decreased [Recovering/Resolving]
  - Lung cyst [Not Recovered/Not Resolved]
  - Forced expiratory volume decreased [Recovering/Resolving]
